FAERS Safety Report 11692687 (Version 2)
Quarter: 2015Q4

REPORT INFORMATION
  Report Type: Report from Study
  Country: DE (occurrence: DE)
  Receive Date: 20151103
  Receipt Date: 20151202
  Transmission Date: 20160304
  Serious: Yes (Hospitalization, Other)
  Sender: FDA-Public Use
  Company Number: PHHY2015DE141859

PATIENT
  Sex: Female

DRUGS (1)
  1. EXTAVIA [Suspect]
     Active Substance: INTERFERON BETA-1B
     Indication: MULTIPLE SCLEROSIS
     Dosage: 250 UG/ML EVERY OTHER DAY
     Route: 058
     Dates: start: 20150813

REACTIONS (3)
  - Gait disturbance [Recovered/Resolved]
  - Stress [Recovered/Resolved]
  - Skin ulcer [Recovered/Resolved]
